FAERS Safety Report 9216341 (Version 2)
Quarter: 2013Q2

REPORT INFORMATION
  Report Type: Spontaneous
  Country: US (occurrence: None)
  Receive Date: 20130402
  Receipt Date: 20130517
  Transmission Date: 20140414
  Serious: Yes (Other)
  Sender: FDA-Public Use
  Company Number: ACO_34959_2013

PATIENT
  Age: 64 Year
  Sex: Male
  Weight: 105.2 kg

DRUGS (21)
  1. AMPYRA [Suspect]
     Indication: GAIT DISTURBANCE
     Route: 048
     Dates: start: 2011, end: 201112
  2. CIALIS (TADALAFIL) [Concomitant]
  3. EFFIENT (PRASUGREL HYDROCHLORIDE) [Concomitant]
  4. DIOVAN (VALSARTAN) [Concomitant]
  5. OMEPRAZOLE (OMEPRAZOLE) [Concomitant]
  6. SIMVASTATIN (SIMVASTATIN) [Concomitant]
  7. CARVEDILOL (CARVEDILOL) [Concomitant]
  8. BACLOFEN (BACLOFEN) [Concomitant]
  9. BYSTOLIC (NEBIVOLOL HYDROCHLORIDE) [Concomitant]
  10. ASA (ACETYLSALICYLIC ACID) [Concomitant]
  11. VITAMIN D (ERGOCALCIFEROL) [Concomitant]
  12. WAL ZYR (CETIRIZINE HYDROCHLORIDE) [Concomitant]
  13. PENNSAID (DICLOFENAC SODIUM) [Concomitant]
  14. VITAMIN C [Concomitant]
  15. MULTIVITAMIN (VITAMINS NOS) [Concomitant]
  16. CALCIUM MAGNESIUM ZINC (CALCIUM, MAGNESIUM, ZINC) [Concomitant]
  17. PROSTAMEN CAPSULE [Concomitant]
  18. TYLENOL (PARACETAMOL) [Concomitant]
  19. ROBINUL (GLYCOPYRRONIUM BROMIDE) [Concomitant]
  20. ROPINIROLE HYDROCHLORIDE (ROPINIROLE HYDROCHLORIDE ) [Concomitant]
  21. OTHER THERAPEUTIC PRODUCTS [Concomitant]

REACTIONS (4)
  - Arthroscopic surgery [None]
  - Peroneal nerve palsy [None]
  - Limb injury [None]
  - Drug dose omission [None]
